FAERS Safety Report 20570115 (Version 1)
Quarter: 2022Q1

REPORT INFORMATION
  Report Type: Spontaneous
  Country: GB (occurrence: GB)
  Receive Date: 20220309
  Receipt Date: 20220309
  Transmission Date: 20220424
  Serious: Yes (Disabling, Congenital Anomaly, Other)
  Sender: FDA-Public Use
  Company Number: GB-ABBVIE-22K-167-4302177-00

PATIENT
  Sex: Female

DRUGS (1)
  1. VALPROATE SODIUM [Suspect]
     Active Substance: VALPROATE SODIUM
     Indication: Maternal exposure timing unspecified
     Route: 064

REACTIONS (8)
  - Cleft palate [Recovered/Resolved with Sequelae]
  - Hypoacusis [Not Recovered/Not Resolved]
  - Speech disorder [Unknown]
  - Cardiac murmur [Unknown]
  - Foetal anticonvulsant syndrome [Not Recovered/Not Resolved]
  - Cardiac septal defect [Recovered/Resolved]
  - Developmental delay [Not Recovered/Not Resolved]
  - Foetal exposure during pregnancy [Unknown]

NARRATIVE: CASE EVENT DATE: 20110316
